FAERS Safety Report 18206935 (Version 1)
Quarter: 2020Q3

REPORT INFORMATION
  Report Type: Spontaneous
  Country: US (occurrence: US)
  Receive Date: 20200828
  Receipt Date: 20200828
  Transmission Date: 20201103
  Serious: Yes (Death, Hospitalization)
  Sender: FDA-Public Use
  Company Number: US-JNJFOC-20200844462

PATIENT
  Age: 8 Decade
  Sex: Male

DRUGS (2)
  1. XARELTO [Suspect]
     Active Substance: RIVAROXABAN
     Indication: HEART RATE IRREGULAR
     Route: 048
     Dates: start: 201211
  2. XARELTO [Suspect]
     Active Substance: RIVAROXABAN
     Route: 048
     Dates: start: 20130226, end: 201411

REACTIONS (3)
  - Epistaxis [Unknown]
  - Haemorrhagic stroke [Recovering/Resolving]
  - Decubitus ulcer [Unknown]

NARRATIVE: CASE EVENT DATE: 20141107
